FAERS Safety Report 7342133-6 (Version None)
Quarter: 2011Q1

REPORT INFORMATION
  Report Type: 
  Country: None (occurrence: None)
  Receive Date: 20110309
  Receipt Date: 20110301
  Transmission Date: 20110831
  Serious: Yes (Death, Hospitalization, Other)
  Sender: FDA-Public Use
  Company Number: US-MERCK-0805USA00702

PATIENT
  Age: 70 Year
  Sex: Male
  Weight: 73 kg

DRUGS (2)
  1. FOSAMAX [Suspect]
     Indication: OSTEOPOROSIS
     Route: 048
     Dates: start: 20000101, end: 20060101
  2. FOSAMAX [Suspect]
     Route: 048
     Dates: start: 20000101, end: 20060101

REACTIONS (68)
  - GASTRITIS [None]
  - SKELETAL INJURY [None]
  - SKIN INFECTION [None]
  - LOSS OF CONSCIOUSNESS [None]
  - DEATH [None]
  - JOINT DISLOCATION POSTOPERATIVE [None]
  - ANXIETY [None]
  - CHOLELITHIASIS [None]
  - ABNORMAL LOSS OF WEIGHT [None]
  - GINGIVAL DISORDER [None]
  - BALANCE DISORDER [None]
  - CARDIAC VALVE DISEASE [None]
  - ARTHROPATHY [None]
  - HYPERLIPIDAEMIA [None]
  - CARDIAC DISORDER [None]
  - ACTINIC KERATOSIS [None]
  - OSTEONECROSIS OF JAW [None]
  - RENAL FAILURE [None]
  - PNEUMONIA [None]
  - ARTHRITIS [None]
  - BACK PAIN [None]
  - CELLULITIS [None]
  - LEUKOCYTOSIS [None]
  - GINGIVITIS [None]
  - FALL [None]
  - ACUTE MYOCARDIAL INFARCTION [None]
  - BRONCHITIS [None]
  - CARDIAC FAILURE CONGESTIVE [None]
  - CARDIAC ENZYMES INCREASED [None]
  - PALPITATIONS [None]
  - ANGIOCENTRIC LYMPHOMA [None]
  - OSTEORADIONECROSIS [None]
  - EYELID DISORDER [None]
  - ADVERSE DRUG REACTION [None]
  - CONTUSION [None]
  - RHEUMATOID ARTHRITIS [None]
  - PARONYCHIA [None]
  - OBESITY [None]
  - NASAL SEPTUM PERFORATION [None]
  - FUNGAL INFECTION [None]
  - HELICOBACTER INFECTION [None]
  - GLAUCOMA [None]
  - FRACTURE DISPLACEMENT [None]
  - BODY TINEA [None]
  - ARTERIOSCLEROSIS [None]
  - ANAEMIA [None]
  - OSTEOPENIA [None]
  - NEUROPATHY PERIPHERAL [None]
  - SCOLIOSIS [None]
  - FLATULENCE [None]
  - OSTEOMYELITIS ACUTE [None]
  - ABDOMINAL PAIN [None]
  - DUODENITIS [None]
  - DRY MOUTH [None]
  - COLON ADENOMA [None]
  - OEDEMA PERIPHERAL [None]
  - PULMONARY CALCIFICATION [None]
  - CHEST PAIN [None]
  - CHRONIC SINUSITIS [None]
  - PANCREATITIS [None]
  - NASAL CAVITY CANCER [None]
  - COMPRESSION FRACTURE [None]
  - MUCOSAL INFLAMMATION [None]
  - INTERVERTEBRAL DISC DISORDER [None]
  - LIP SWELLING [None]
  - GRANULOMA [None]
  - EPISTAXIS [None]
  - DEPRESSION [None]
